FAERS Safety Report 5646524-0 (Version None)
Quarter: 2008Q1

REPORT INFORMATION
  Report Type: 
  Country: None (occurrence: None)
  Receive Date: 20080227
  Receipt Date: 20080219
  Transmission Date: 20080703
  Serious: Yes (Hospitalization)
  Sender: FDA-Public Use
  Company Number: 2008SP003605

PATIENT
  Age: 66 Year
  Sex: Male

DRUGS (4)
  1. RIBAVIRIN [Suspect]
     Indication: HEPATITIS C
     Dosage: 400 MG; BID; PO
     Route: 048
     Dates: start: 20080122
  2. INTERFERON BETA (INTERFERON BETA) [Suspect]
     Indication: HEPATITIS C
     Dosage: ;IV
     Route: 042
     Dates: start: 20080122
  3. CALONAL (CON.) [Concomitant]
  4. RHYTHMY (CON.) [Concomitant]

REACTIONS (7)
  - ANAL HAEMORRHAGE [None]
  - DIARRHOEA [None]
  - INSOMNIA [None]
  - NASOPHARYNGITIS [None]
  - PROTEIN URINE PRESENT [None]
  - PYREXIA [None]
  - URINE BILIRUBIN INCREASED [None]
